FAERS Safety Report 14339271 (Version 1)
Quarter: 2017Q4

REPORT INFORMATION
  Report Type: Spontaneous
  Country: PL (occurrence: PL)
  Receive Date: 20171230
  Receipt Date: 20171230
  Transmission Date: 20180321
  Serious: Yes (Other)
  Sender: FDA-Public Use
  Company Number: PL-ACCORD-062398

PATIENT
  Age: 43 Year
  Sex: Male

DRUGS (2)
  1. RISPERIDONE. [Suspect]
     Active Substance: RISPERIDONE
     Indication: SCHIZOTYPAL PERSONALITY DISORDER
  2. QUETIAPINE. [Suspect]
     Active Substance: QUETIAPINE
     Indication: SCHIZOTYPAL PERSONALITY DISORDER

REACTIONS (6)
  - Hypertriglyceridaemia [Recovering/Resolving]
  - Off label use [Unknown]
  - Hepatic steatosis [Unknown]
  - Hyperglycaemia [Recovering/Resolving]
  - Xanthoma [Recovered/Resolved]
  - Hypercholesterolaemia [Recovering/Resolving]
